FAERS Safety Report 15478091 (Version 1)
Quarter: 2018Q4

REPORT INFORMATION
  Report Type: Spontaneous
  Country: US (occurrence: US)
  Receive Date: 20181009
  Receipt Date: 20181009
  Transmission Date: 20190205
  Serious: Yes (Other)
  Sender: FDA-Public Use
  Company Number: US-SA-2018SA277214

PATIENT
  Sex: Female

DRUGS (1)
  1. LOVENOX [Suspect]
     Active Substance: ENOXAPARIN SODIUM
     Indication: BREAST CANCER
     Dosage: 100 MG, QD
     Route: 048
     Dates: start: 20180731

REACTIONS (9)
  - Diarrhoea [Unknown]
  - Hot flush [Unknown]
  - Rectal haemorrhage [Unknown]
  - Injection site bruising [Unknown]
  - Neuropathy peripheral [Unknown]
  - Dizziness [Unknown]
  - Proctalgia [Unknown]
  - Injection site rash [Unknown]
  - Oedema peripheral [Unknown]
